FAERS Safety Report 7949712-3 (Version None)
Quarter: 2011Q4

REPORT INFORMATION
  Report Type: 
  Country: None (occurrence: None)
  Receive Date: 20111130
  Receipt Date: 20111124
  Transmission Date: 20120403
  Serious: Yes (Hospitalization, Disabling)
  Sender: FDA-Public Use
  Company Number: GXKR2011DE003419

PATIENT

DRUGS (3)
  1. DEGARELIX [Suspect]
     Indication: PROSTATE CANCER METASTATIC
     Dosage: 240 MG DURING FIRST APPL. ON 01.12.10, AFTERWARDS 80 MG EVERY 4 WEEKS
     Route: 058
     Dates: start: 20101201
  2. PREDNISOLONE [Suspect]
     Indication: PROSTATE CANCER METASTATIC
     Dosage: 5 MG, BID
     Route: 048
     Dates: start: 20110112
  3. DOCETAXEL [Suspect]
     Indication: PROSTATE CANCER
     Dosage: IN TOTAL 3 CYCLES: FIRST APPL. ON 12JAN11, SEC. APPL. ON 02FEB11, THIRD APPL. ON 23FEB11
     Route: 042
     Dates: start: 20110112, end: 20110223

REACTIONS (1)
  - INTERSTITIAL LUNG DISEASE [None]
